FAERS Safety Report 7743694-5 (Version None)
Quarter: 2011Q3

REPORT INFORMATION
  Report Type: 
  Country: None (occurrence: None)
  Receive Date: 20110912
  Receipt Date: 20110906
  Transmission Date: 20111222
  Serious: Yes (Hospitalization, Other)
  Sender: FDA-Public Use
  Company Number: CA-ELI_LILLY_AND_COMPANY-CA201109001705

PATIENT
  Age: 41 Year
  Sex: Male

DRUGS (3)
  1. HUMULIN N [Suspect]
     Dosage: UNK, UNKNOWN
  2. HUMALOG [Suspect]
     Dosage: UNK, UNKNOWN
  3. HUMULIN 70/30 [Suspect]
     Dosage: UNK, UNKNOWN

REACTIONS (13)
  - DECREASED APPETITE [None]
  - BLOOD GLUCOSE INCREASED [None]
  - BLOOD GLUCOSE DECREASED [None]
  - DIABETIC RETINOPATHY [None]
  - FOOD POISONING [None]
  - DIABETIC COMA [None]
  - EYE DISORDER [None]
  - INFLUENZA [None]
  - VISUAL IMPAIRMENT [None]
  - EYE HAEMORRHAGE [None]
  - WEIGHT DECREASED [None]
  - FATIGUE [None]
  - VISION BLURRED [None]
